FAERS Safety Report 20003910 (Version 13)
Quarter: 2023Q2

REPORT INFORMATION
  Report Type: Report from Study
  Country: CA (occurrence: CA)
  Receive Date: 20211027
  Receipt Date: 20230501
  Transmission Date: 20230721
  Serious: Yes (Other)
  Sender: FDA-Public Use
  Company Number: CA-OTSUKA-2021_028993

PATIENT
  Age: 70 Year
  Sex: Male
  Weight: 76.6 kg

DRUGS (12)
  1. CEDAZURIDINE\DECITABINE [Suspect]
     Active Substance: CEDAZURIDINE\DECITABINE
     Indication: Chronic myelomonocytic leukaemia
     Dosage: UNK (35 MG DECITABINE AND 100 MG CEDAZURIDINE) FIVE DOSE, 4 PILLS/28 DAY CYCLE
     Route: 048
     Dates: start: 20210811
  2. CEDAZURIDINE\DECITABINE [Suspect]
     Active Substance: CEDAZURIDINE\DECITABINE
     Dosage: UNK (35 MG DECITABINE AND 100 MG CEDAZURIDINE) DOWN TO FOUR DOSES
     Route: 065
  3. CEDAZURIDINE\DECITABINE [Suspect]
     Active Substance: CEDAZURIDINE\DECITABINE
     Dosage: 5 TABLETS (35 MG DECITABINE AND 100 MG CEDAZURIDINE) EVERY 28 DAYS CYCLE
     Route: 065
  4. CEDAZURIDINE\DECITABINE [Suspect]
     Active Substance: CEDAZURIDINE\DECITABINE
     Dosage: 4 TABLETS, (35 MG DECITABINE AND 100 MG CEDAZURIDINE)
     Route: 065
  5. CEDAZURIDINE\DECITABINE [Suspect]
     Active Substance: CEDAZURIDINE\DECITABINE
     Dosage: 4 DF (35 MG DECITABINE AND 100 MG CEDAZURIDINE) , WITH 42 DAYS
     Route: 065
  6. CEDAZURIDINE\DECITABINE [Suspect]
     Active Substance: CEDAZURIDINE\DECITABINE
     Dosage: 5 DF (35 MG DECITABINE AND 100 MG CEDAZURIDINE), 5 TABLETS
     Route: 065
  7. ASPIRIN [Concomitant]
     Active Substance: ASPIRIN
     Indication: Product used for unknown indication
     Dosage: 81 MG, QD
     Route: 048
  8. CALCIUM [Concomitant]
     Active Substance: CALCIUM
     Indication: Product used for unknown indication
     Dosage: 500 MG, QD
     Route: 048
  9. PANTOPRAZOLE [Concomitant]
     Active Substance: PANTOPRAZOLE
     Indication: Product used for unknown indication
     Dosage: 40 MG, QD
     Route: 048
  10. LYRICA [Concomitant]
     Active Substance: PREGABALIN
     Indication: Product used for unknown indication
     Dosage: 100 MG, BID
     Route: 048
  11. CRESTOR [Concomitant]
     Active Substance: ROSUVASTATIN CALCIUM
     Indication: Product used for unknown indication
     Dosage: 20 MG, QD (AT BEDTIME)
     Route: 048
  12. MULTAMIN [VITAMINS NOS] [Concomitant]
     Indication: Product used for unknown indication
     Dosage: UNK, QD
     Route: 065

REACTIONS (16)
  - Platelet transfusion [Recovered/Resolved]
  - Cytopenia [Recovered/Resolved]
  - Chills [Recovered/Resolved]
  - Biopsy bone marrow [Recovered/Resolved]
  - Eastern Cooperative Oncology Group performance status worsened [Recovered/Resolved]
  - Visual acuity reduced [Unknown]
  - General physical health deterioration [Recovered/Resolved]
  - Increased tendency to bruise [Unknown]
  - Contusion [Recovered/Resolved]
  - Myalgia [Unknown]
  - Arthralgia [Unknown]
  - Fatigue [Recovered/Resolved]
  - Nausea [Recovering/Resolving]
  - Vomiting [Recovering/Resolving]
  - Therapy interrupted [Unknown]
  - Product use issue [Unknown]

NARRATIVE: CASE EVENT DATE: 20210813
